FAERS Safety Report 24002076 (Version 1)
Quarter: 2024Q2

REPORT INFORMATION
  Report Type: Report from Study
  Country: MX (occurrence: MX)
  Receive Date: 20240622
  Receipt Date: 20240622
  Transmission Date: 20240715
  Serious: Yes (Other)
  Sender: FDA-Public Use
  Company Number: MX-UNITED THERAPEUTICS-UNT-2024-018757

PATIENT
  Age: 35 Year
  Weight: 65 kg

DRUGS (2)
  1. TREPROSTINIL SODIUM [Suspect]
     Active Substance: TREPROSTINIL SODIUM
     Indication: Pulmonary arterial hypertension
     Dosage: UNK (AT AN INFUSION RATE OF 0.028 ML/HR [2.80 U/HR]), CONTINUING
  2. TREPROSTINIL SODIUM [Suspect]
     Active Substance: TREPROSTINIL SODIUM
     Dosage: UNK, CONTINUING

REACTIONS (8)
  - Catheter site pain [Recovering/Resolving]
  - Catheter site inflammation [Recovering/Resolving]
  - Catheter site discharge [Recovering/Resolving]
  - Purulent discharge [Recovering/Resolving]
  - Catheter site pruritus [Recovering/Resolving]
  - Catheter site infection [Recovering/Resolving]
  - Catheter site related reaction [Recovering/Resolving]
  - Catheter site haemorrhage [Recovering/Resolving]
